FAERS Safety Report 8586183 (Version 2)
Quarter: 2013Q2

REPORT INFORMATION
  Report Type: Spontaneous
  Country: US (occurrence: US)
  Receive Date: 20120530
  Receipt Date: 20130530
  Transmission Date: 20140414
  Serious: No
  Sender: FDA-Public Use
  Company Number: US-GLAXOSMITHKLINE-A0964042A

PATIENT
  Age: 69 Year
  Sex: Male

DRUGS (1)
  1. VENTOLIN [Suspect]
     Indication: PRODUCT USED FOR UNKNOWN INDICATION
     Dosage: 4PUFF AS REQUIRED
     Route: 055
     Dates: start: 20100427

REACTIONS (3)
  - Dyspnoea [Not Recovered/Not Resolved]
  - Drug administration error [Unknown]
  - Overdose [Unknown]
